FAERS Safety Report 4322672-2 (Version None)
Quarter: 2004Q1

REPORT INFORMATION
  Report Type: 
  Country: None (occurrence: None)
  Receive Date: 20040324
  Receipt Date: 20040224
  Transmission Date: 20041129
  Serious: No
  Sender: FDA-Public Use
  Company Number: US-BRISTOL-MYERS SQUIBB COMPANY-12514949

PATIENT
  Sex: Male

DRUGS (3)
  1. REYATAZ [Suspect]
  2. VIRAMUNE [Suspect]
     Indication: HIV INFECTION
  3. RITONAVIR [Suspect]

REACTIONS (2)
  - HEPATITIS B [None]
  - LIVER FUNCTION TEST ABNORMAL [None]
